FAERS Safety Report 13991151 (Version 2)
Quarter: 2019Q1

REPORT INFORMATION
  Report Type: Spontaneous
  Country: US (occurrence: US)
  Receive Date: 20170920
  Receipt Date: 20190228
  Transmission Date: 20190417
  Serious: No
  Sender: FDA-Public Use
  Company Number: US-JNJFOC-20170703841

PATIENT
  Age: 20 Year
  Sex: Male
  Weight: 103.42 kg

DRUGS (1)
  1. RISPERDAL [Suspect]
     Active Substance: RISPERIDONE
     Indication: DRUG THERAPY
     Route: 048
     Dates: start: 20100121, end: 20100321

REACTIONS (6)
  - Feeling abnormal [Unknown]
  - Depression [Unknown]
  - Product use in unapproved indication [Unknown]
  - Overweight [Unknown]
  - Gynaecomastia [Not Recovered/Not Resolved]
  - Off label use [Unknown]

NARRATIVE: CASE EVENT DATE: 2010
